FAERS Safety Report 12200740 (Version 4)
Quarter: 2016Q2

REPORT INFORMATION
  Report Type: Report from Study
  Country: US (occurrence: US)
  Receive Date: 20160322
  Receipt Date: 20160425
  Transmission Date: 20160815
  Serious: Yes (Hospitalization, Other)
  Sender: FDA-Public Use
  Company Number: US-GLAXOSMITHKLINE-US2016039098

PATIENT
  Age: 54 Year
  Sex: Female
  Weight: 123 kg

DRUGS (6)
  1. FLUTICASONE FUROATE + VILANTEROL TRIFENATATE [Suspect]
     Active Substance: FLUTICASONE FUROATE\VILANTEROL TRIFENATATE
     Dosage: 100/25 UG, QD
     Route: 055
     Dates: start: 20160321
  2. PEPCID [Concomitant]
     Active Substance: FAMOTIDINE
     Indication: DYSPEPSIA
     Dosage: 20 MG, BID
     Route: 042
     Dates: start: 20160318, end: 20160320
  3. FLUZONE (INACTIVATED INFLUENZA VACCINE) [Concomitant]
     Indication: IMMUNISATION
     Route: 030
     Dates: start: 20160320, end: 20160320
  4. NICODERM CQ [Concomitant]
     Active Substance: NICOTINE
     Indication: SMOKING CESSATION THERAPY
     Route: 062
     Dates: start: 20160320, end: 20160320
  5. FLUTICASONE FUROATE + VILANTEROL TRIFENATATE [Suspect]
     Active Substance: FLUTICASONE FUROATE\VILANTEROL TRIFENATATE
     Indication: CHRONIC OBSTRUCTIVE PULMONARY DISEASE
     Dosage: 100/25 UG, QD
     Route: 055
     Dates: start: 20150421, end: 20160318
  6. ZOFRAN [Concomitant]
     Active Substance: ONDANSETRON HYDROCHLORIDE
     Indication: NAUSEA
     Dosage: 4 MG, SINGLE
     Route: 042
     Dates: start: 20160320

REACTIONS (1)
  - Respiratory failure [Recovered/Resolved]

NARRATIVE: CASE EVENT DATE: 20160314
